FAERS Safety Report 10113253 (Version 1)
Quarter: 2014Q2

REPORT INFORMATION
  Report Type: Spontaneous
  Country: US (occurrence: US)
  Receive Date: 20140425
  Receipt Date: 20140425
  Transmission Date: 20141212
  Serious: Yes (Hospitalization)
  Sender: FDA-Public Use
  Company Number: US-BAYER-2014-057395

PATIENT
  Age: 51 Year
  Sex: Male

DRUGS (2)
  1. KOGENATE FS [Suspect]
     Indication: HAEMOPHILIA
     Dosage: UNK
  2. KOGENATE FS [Suspect]
     Indication: HAEMOPHILIA
     Dosage: UNK

REACTIONS (2)
  - Hypovolaemic shock [None]
  - Gastrointestinal haemorrhage [None]
